FAERS Safety Report 11031022 (Version 1)
Quarter: 2015Q2

REPORT INFORMATION
  Report Type: Spontaneous
  Country: CN (occurrence: CN)
  Receive Date: 20150415
  Receipt Date: 20150415
  Transmission Date: 20150821
  Serious: Yes (Other)
  Sender: FDA-Public Use
  Company Number: CN-PFIZER INC-2015128087

PATIENT
  Age: 41 Year
  Sex: Male

DRUGS (2)
  1. SOLU-MEDROL [Suspect]
     Active Substance: METHYLPREDNISOLONE SODIUM SUCCINATE
     Indication: HYPERSENSITIVITY
     Dosage: 80 MG, 1X/DAY
     Route: 041
     Dates: start: 20141006, end: 20141013
  2. BAIDING [Concomitant]
     Indication: POSTOPERATIVE WOUND INFECTION
     Dosage: 2.5 G, 3X/DAY
     Route: 041
     Dates: start: 20141004, end: 20141025

REACTIONS (1)
  - Granulocytopenia [Recovered/Resolved]

NARRATIVE: CASE EVENT DATE: 20141029
